FAERS Safety Report 8386616-9 (Version None)
Quarter: 2012Q2

REPORT INFORMATION
  Report Type: 
  Country: None (occurrence: None)
  Receive Date: 20120525
  Receipt Date: 20120319
  Transmission Date: 20120825
  Serious: No
  Sender: FDA-Public Use
  Company Number: US-GLAXOSMITHKLINE-A0970350A

PATIENT
  Age: 58 Year
  Sex: Female

DRUGS (1)
  1. VERAMYST [Suspect]
     Indication: NASAL CONGESTION
     Dosage: 1SPR SINGLE DOSE
     Route: 045

REACTIONS (1)
  - BRONCHITIS [None]
